FAERS Safety Report 7531288-6 (Version None)
Quarter: 2011Q2

REPORT INFORMATION
  Report Type: 
  Country: None (occurrence: None)
  Receive Date: 20110531
  Receipt Date: 20110516
  Transmission Date: 20111010
  Serious: Yes (Other)
  Sender: FDA-Public Use
  Company Number: 2011MA005975

PATIENT
  Age: 16 Year

DRUGS (2)
  1. METFORMIN HYDROCHLORIDE [Suspect]
     Dosage: 22 G
  2. SIMVASTATIN [Concomitant]

REACTIONS (4)
  - OVERDOSE [None]
  - DIABETES INSIPIDUS [None]
  - RENAL FAILURE [None]
  - PANCREATITIS [None]
